FAERS Safety Report 7138004-0 (Version None)
Quarter: 2010Q4

REPORT INFORMATION
  Report Type: 
  Country: None (occurrence: None)
  Receive Date: 20101103
  Receipt Date: 20091020
  Transmission Date: 20110411
  Serious: Yes (Other)
  Sender: FDA-Public Use
  Company Number: US-WYE-H11771009

PATIENT
  Age: 42 Year
  Sex: Female
  Weight: 54.48 kg

DRUGS (1)
  1. EFFEXOR XR [Suspect]
     Dosage: 75 MG 1X PER 1 TOT, ORAL
     Route: 048
     Dates: start: 20050101

REACTIONS (3)
  - FEELING ABNORMAL [None]
  - FEELING JITTERY [None]
  - NERVOUSNESS [None]
